FAERS Safety Report 4976276-9 (Version None)
Quarter: 2006Q2

REPORT INFORMATION
  Report Type: 
  Country: None (occurrence: None)
  Receive Date: 20060412
  Receipt Date: 20060330
  Transmission Date: 20061013
  Serious: Yes (Other)
  Sender: FDA-Public Use
  Company Number: 2006-0009165

PATIENT
  Age: 47 Year
  Sex: Male
  Weight: 93 kg

DRUGS (6)
  1. TRUVADA [Suspect]
     Indication: HIV INFECTION
     Dosage: 1 DOSAGE FORMS, 1 IN 1 D, ORAL
     Route: 048
  2. VIRAMUNE [Suspect]
     Indication: HIV INFECTION
     Dosage: 1 IN 2 D, ORAL
     Route: 048
  3. CONCOR 5 (BISOPROLOL HEMIFUMARATE) [Concomitant]
  4. DELIX 5 PLUS (SALUTEC) [Concomitant]
  5. ACTRAPID (INSULIN HUMAN) [Concomitant]
  6. PROTAPHANE                (INSULIN INJECTION, ISOPHANE) [Concomitant]

REACTIONS (4)
  - ALLERGIC GRANULOMATOUS ANGIITIS [None]
  - HAEMOPTYSIS [None]
  - LUNG INFILTRATION [None]
  - PLEURAL EFFUSION [None]
